FAERS Safety Report 6377674-1 (Version None)
Quarter: 2009Q3

REPORT INFORMATION
  Report Type: 
  Country: None (occurrence: None)
  Receive Date: 20090925
  Receipt Date: 20090815
  Transmission Date: 20100115
  Serious: Yes (Other)
  Sender: FDA-Public Use
  Company Number: CHPA2009US15382

PATIENT
  Sex: Female
  Weight: 64.399 kg

DRUGS (15)
  1. EXCEDRIN EXTRA STRENGTH (NCH) [Suspect]
     Indication: HEADACHE
     Dosage: 60 MG, QD
     Route: 048
  2. NABUMETONE [Suspect]
     Indication: FIBROMYALGIA
     Dosage: 750 MG, QD
     Route: 048
     Dates: start: 20060419, end: 20080714
  3. CITALOPRAM HYDROBROMIDE [Concomitant]
     Dosage: 60 MG, QD
     Route: 048
  4. GABAPENTIN [Concomitant]
     Dosage: 600 MG, QD
     Route: 048
  5. SODIUM BICARBONATE IN PLASTIC CONTAINER [Concomitant]
     Dosage: 650 MG, BID
     Route: 048
  6. SODIUM BICARBONATE IN PLASTIC CONTAINER [Concomitant]
     Dosage: 650 MG, BID
     Route: 048
  7. CALCIUM-D-SANDOZ [Concomitant]
     Dosage: 600-200MG UNIT 1, QD
  8. MULTI-VITAMINS [Concomitant]
     Dosage: 1 DF, QD
     Route: 048
  9. VITAMIN B-12 [Concomitant]
     Dosage: 1000 MCG, QD
  10. CALCITRIOL [Concomitant]
     Dosage: 0.25 MCG, TID
     Route: 048
  11. CALCITRIOL [Concomitant]
     Dosage: 1 DF, QD
     Route: 048
  12. TRIAMTERENE AND HYDROCHLOROTHIAZID ^HARRIS^ [Concomitant]
     Dosage: 37.5/25MG, QD
     Route: 048
  13. CELEXA [Concomitant]
     Dosage: 40 MG, QD
     Route: 048
  14. ^ULTRA ANTIOXIDANT^ [Concomitant]
     Dosage: 1 DF, QD
     Route: 048
  15. EXCEDRIN QUICKTAB (NCH) [Concomitant]
     Dosage: 500-65 MG, QD
     Route: 048

REACTIONS (25)
  - ACIDOSIS [None]
  - ANAEMIA [None]
  - BLOOD CHLORIDE INCREASED [None]
  - BLOOD CREATININE INCREASED [None]
  - BLOOD GLUCOSE INCREASED [None]
  - BLOOD PARATHYROID HORMONE INCREASED [None]
  - BLOOD PHOSPHORUS INCREASED [None]
  - BLOOD UREA INCREASED [None]
  - CARBON DIOXIDE DECREASED [None]
  - FATIGUE [None]
  - GLOMERULAR FILTRATION RATE DECREASED [None]
  - HAEMATOCRIT DECREASED [None]
  - HAEMOGLOBIN DECREASED [None]
  - HIATUS HERNIA [None]
  - HYPERCALCAEMIA [None]
  - HYPERPARATHYROIDISM SECONDARY [None]
  - HYPOVOLAEMIA [None]
  - INTENTIONAL DRUG MISUSE [None]
  - KIDNEY SMALL [None]
  - METABOLIC ACIDOSIS [None]
  - NEPHROLITHIASIS [None]
  - PROTEINURIA [None]
  - RED BLOOD CELL COUNT DECREASED [None]
  - RENAL FAILURE CHRONIC [None]
  - VITAMIN B12 INCREASED [None]
